FAERS Safety Report 5672323-X (Version None)
Quarter: 2008Q1

REPORT INFORMATION
  Report Type: 
  Country: None (occurrence: None)
  Receive Date: 20080317
  Receipt Date: 20080306
  Transmission Date: 20080703
  Serious: Yes (Hospitalization)
  Sender: FDA-Public Use
  Company Number: 163-21880-08030374

PATIENT
  Age: 74 Year
  Sex: Male
  Weight: 86.4 kg

DRUGS (2)
  1. REVLIMID [Suspect]
     Indication: MANTLE CELL LYMPHOMA
     Dosage: 20 MG, QD ON DAYS 1-14, ORAL
     Route: 048
     Dates: start: 20080215
  2. BORTEZOMIB (BORTEZOMIB) [Suspect]
     Indication: MANTLE CELL LYMPHOMA
     Dosage: 1-3 MG/ML, OVER 3-5 SEC ON DAYS 1,4, 8 AND 11, INTRAVENOUS
     Route: 042
     Dates: start: 20080215

REACTIONS (3)
  - ANOREXIA [None]
  - ILEUS [None]
  - NAUSEA [None]
